FAERS Safety Report 17442504 (Version 3)
Quarter: 2020Q1

REPORT INFORMATION
  Report Type: Spontaneous
  Country: BR (occurrence: BR)
  Receive Date: 20200220
  Receipt Date: 20200327
  Transmission Date: 20200409
  Serious: Yes (Disabling, Other)
  Sender: FDA-Public Use
  Company Number: BR-SANOFI-AVENTIS-2013SA085260

PATIENT
  Age: 69 Year
  Sex: Female
  Weight: 80 kg

DRUGS (12)
  1. ZETIA [Concomitant]
     Active Substance: EZETIMIBE
     Indication: BLOOD CHOLESTEROL
     Dosage: 1 DF,QD
     Route: 048
     Dates: start: 2010
  2. MICARDIS [Concomitant]
     Active Substance: TELMISARTAN
     Indication: HYPERTENSION
     Dosage: 1 DF,QD
     Route: 048
     Dates: start: 2011
  3. BENFOTIAMINE [Concomitant]
     Active Substance: BENFOTIAMINE
     Indication: NEURALGIA
     Dosage: 1 DF,QD
     Route: 048
     Dates: start: 201305
  4. LANTUS [Suspect]
     Active Substance: INSULIN GLARGINE
     Indication: TYPE 2 DIABETES MELLITUS
     Dosage: 22 DF,QD
     Route: 058
     Dates: start: 2008
  5. LIPITOR [Concomitant]
     Active Substance: ATORVASTATIN CALCIUM
     Indication: VEIN DISORDER
     Dosage: 1 DF,QD
     Route: 048
     Dates: start: 2006
  6. JARDIANCE [Concomitant]
     Active Substance: EMPAGLIFLOZIN
     Indication: TYPE 2 DIABETES MELLITUS
     Dosage: 1 DF, QD
     Route: 048
  7. NESINA [Concomitant]
     Active Substance: ALOGLIPTIN BENZOATE
     Indication: TYPE 2 DIABETES MELLITUS
     Dosage: 1 DF, BID
     Route: 048
  8. CODEINE [Concomitant]
     Active Substance: CODEINE
     Indication: BACK PAIN
     Dosage: 1 DF, QD
     Route: 048
  9. LANTUS [Suspect]
     Active Substance: INSULIN GLARGINE
     Dosage: 40 IU, HS
     Route: 058
  10. SYNTHROID [Concomitant]
     Active Substance: LEVOTHYROXINE SODIUM
     Indication: VEIN DISORDER
     Dosage: 1 DF,QD
     Route: 048
     Dates: start: 2007
  11. CONCOR [Concomitant]
     Active Substance: BISOPROLOL FUMARATE
     Indication: CARDIAC DISORDER
     Dosage: 1 DF,QD
     Route: 048
     Dates: start: 2003
  12. DICLOFENAC COLESTYRAMINE [Concomitant]
     Active Substance: CHOLESTYRAMINE\DICLOFENAC
     Indication: PAIN
     Dosage: 1 DF, QD
     Route: 048
     Dates: start: 201908

REACTIONS (10)
  - Sitting disability [Unknown]
  - Condition aggravated [Not Recovered/Not Resolved]
  - Bone pain [Unknown]
  - Gait inability [Unknown]
  - Blood glucose decreased [Unknown]
  - Cataract [Not Recovered/Not Resolved]
  - Diabetic neuropathy [Unknown]
  - Pain [Not Recovered/Not Resolved]
  - Nervousness [Unknown]
  - Appetite disorder [Unknown]

NARRATIVE: CASE EVENT DATE: 201306
